FAERS Safety Report 10164499 (Version 1)
Quarter: 2014Q2

REPORT INFORMATION
  Report Type: Spontaneous
  Country: US (occurrence: US)
  Receive Date: 20140510
  Receipt Date: 20140510
  Transmission Date: 20141212
  Serious: No
  Sender: FDA-Public Use
  Company Number: US-BRISTOL-MYERS SQUIBB COMPANY-20072476

PATIENT
  Age: 48 Year
  Sex: Female
  Weight: 89.79 kg

DRUGS (8)
  1. BYDUREON [Suspect]
     Indication: TYPE 2 DIABETES MELLITUS
     Dosage: THERAPY ON JAN14
     Route: 058
     Dates: start: 201401
  2. LEVEMIR [Concomitant]
     Indication: TYPE 2 DIABETES MELLITUS
  3. JANUVIA [Concomitant]
     Indication: TYPE 2 DIABETES MELLITUS
  4. AMARYL [Concomitant]
     Indication: TYPE 2 DIABETES MELLITUS
  5. LOPRESSOR [Concomitant]
  6. VITAMINS [Concomitant]
  7. LANTUS [Concomitant]
  8. IBUPROFEN [Concomitant]

REACTIONS (4)
  - Lethargy [Recovering/Resolving]
  - Arthralgia [Unknown]
  - Back pain [Unknown]
  - Headache [Recovered/Resolved]
